FAERS Safety Report 21238238 (Version 2)
Quarter: 2022Q3

REPORT INFORMATION
  Report Type: Spontaneous
  Country: JP (occurrence: JP)
  Receive Date: 20220822
  Receipt Date: 20220921
  Transmission Date: 20221027
  Serious: Yes (Other)
  Sender: FDA-Public Use
  Company Number: JP-MSD-M2022-34232

PATIENT
  Age: 70 Year
  Sex: Male

DRUGS (2)
  1. CUBICIN [Suspect]
     Active Substance: DAPTOMYCIN
     Indication: Staphylococcal bacteraemia
     Dosage: UNK
     Route: 041
  2. MEROPENEM [Concomitant]
     Active Substance: MEROPENEM
     Dosage: UNK
     Route: 051

REACTIONS (2)
  - Staphylococcal bacteraemia [Unknown]
  - Drug ineffective [Unknown]
